FAERS Safety Report 9342058 (Version 5)
Quarter: 2013Q4

REPORT INFORMATION
  Report Type: Report from Study
  Country: DE (occurrence: DE)
  Receive Date: 20130611
  Receipt Date: 20131220
  Transmission Date: 20140711
  Serious: Yes (Hospitalization)
  Sender: FDA-Public Use
  Company Number: DE-ROCHE-1204214

PATIENT
  Age: 65 Year
  Sex: Female
  Weight: 52 kg

DRUGS (5)
  1. BEVACIZUMAB [Suspect]
     Indication: OVARIAN CANCER
     Dosage: LAST DOSE PRIOR TO EVENT:18/FEB/2013
     Route: 042
     Dates: start: 20120518, end: 20130415
  2. CARBOPLATIN [Suspect]
     Indication: OVARIAN CANCER
     Dosage: LAST DOSE PRIOR TO EVENT:31/AUG/2012, DAILY DOSE:AUC 5=410 MG
     Route: 042
     Dates: start: 20120518, end: 20130415
  3. PACLITAXEL [Suspect]
     Indication: OVARIAN CANCER
     Dosage: LAST DOSE PRIOR TO EVENT:31/AUG/2012
     Route: 042
     Dates: start: 20120518, end: 20130415
  4. BISOPROLOL [Concomitant]
     Indication: TACHYCARDIA
     Route: 048
     Dates: start: 20120520
  5. AMLODIPINE [Concomitant]
     Indication: TACHYCARDIA
     Route: 048
     Dates: start: 20120519

REACTIONS (2)
  - Mitral valve incompetence [Recovered/Resolved]
  - Cardiac failure [Recovered/Resolved]
